FAERS Safety Report 6292203-9 (Version None)
Quarter: 2009Q3

REPORT INFORMATION
  Report Type: 
  Country: None (occurrence: None)
  Receive Date: 20090731
  Receipt Date: 20090722
  Transmission Date: 20100115
  Serious: Yes (Other)
  Sender: FDA-Public Use
  Company Number: PHHY2009GB31225

PATIENT
  Sex: Female

DRUGS (2)
  1. CARBAMAZEPINE [Suspect]
     Dosage: 1200 MG, BID
     Route: 048
  2. CARBAMAZEPINE [Suspect]
     Dosage: 800 MG
     Route: 054

REACTIONS (1)
  - GASTROINTESTINAL PERFORATION [None]
